FAERS Safety Report 6029459-3 (Version None)
Quarter: 2008Q4

REPORT INFORMATION
  Report Type: 
  Country: None (occurrence: None)
  Receive Date: 20081222
  Receipt Date: 20081113
  Transmission Date: 20090506
  Serious: No
  Sender: FDA-Public Use
  Company Number: ALL1-2008-03317

PATIENT
  Age: 38 Year
  Sex: Female
  Weight: 70.7 kg

DRUGS (2)
  1. VYVANSE [Suspect]
     Indication: ATTENTION DEFICIT/HYPERACTIVITY DISORDER
     Dosage: 50 MG, 1X/DAY:QD, ORAL
     Route: 048
     Dates: start: 20081001, end: 20081105
  2. CYMBALTA [Concomitant]

REACTIONS (2)
  - DYSGEUSIA [None]
  - HYPERACUSIS [None]
